FAERS Safety Report 4531048-4 (Version None)
Quarter: 2004Q4

REPORT INFORMATION
  Report Type: 
  Country: None (occurrence: None)
  Receive Date: 20041215
  Receipt Date: 20041202
  Transmission Date: 20050328
  Serious: Yes (Hospitalization)
  Sender: FDA-Public Use
  Company Number: 2004108882

PATIENT
  Age: 75 Year
  Sex: Female

DRUGS (4)
  1. TOLTERODINE (TOLTERODINE) [Suspect]
     Indication: HYPERTONIC BLADDER
     Dosage: 4 MG, ORAL
     Route: 048
     Dates: start: 20031215, end: 20040308
  2. ACENOCOUMAROL (ACENOCOUMAROL) [Concomitant]
  3. ATENOLOL [Concomitant]
  4. BROMAZEPAM (BROMAZEPAM) [Concomitant]

REACTIONS (1)
  - CEREBROVASCULAR ACCIDENT [None]
